FAERS Safety Report 4365121-0 (Version None)
Quarter: 2004Q2

REPORT INFORMATION
  Report Type: 
  Country: None (occurrence: None)
  Receive Date: 20040520
  Receipt Date: 20040510
  Transmission Date: 20050107
  Serious: Yes (Death, Disabling, Other)
  Sender: FDA-Public Use
  Company Number: 2004031173

PATIENT

DRUGS (1)
  1. NEURONTIN [Suspect]
     Indication: ANXIETY
     Dates: start: 20000101, end: 20020401

REACTIONS (7)
  - ABNORMAL BEHAVIOUR [None]
  - ANHEDONIA [None]
  - EMOTIONAL DISORDER [None]
  - MENTAL DISORDER [None]
  - PAIN [None]
  - PHARMACEUTICAL PRODUCT COMPLAINT [None]
  - POLYTRAUMATISM [None]
